FAERS Safety Report 4552620-1 (Version None)
Quarter: 2005Q1

REPORT INFORMATION
  Report Type: 
  Country: None (occurrence: None)
  Receive Date: 20050114
  Receipt Date: 20041202
  Transmission Date: 20050727
  Serious: No
  Sender: FDA-Public Use
  Company Number: US-GLAXOSMITHKLINE-A0535873A

PATIENT
  Age: 44 Year
  Sex: Male

DRUGS (5)
  1. IMITREX [Suspect]
     Indication: MIGRAINE
     Dosage: 6MG AS REQUIRED
     Route: 058
  2. IMITREX [Suspect]
     Route: 045
  3. INDERAL [Concomitant]
  4. VICODIN [Concomitant]
  5. ATIVAN [Concomitant]

REACTIONS (1)
  - DRUG INEFFECTIVE [None]
